FAERS Safety Report 4377347-0 (Version None)
Quarter: 2004Q2

REPORT INFORMATION
  Report Type: 
  Country: None (occurrence: None)
  Receive Date: 20040614
  Receipt Date: 20040614
  Transmission Date: 20050107
  Serious: Yes (Life-Threatening, Hospitalization)
  Sender: FDA-Public Use
  Company Number: None

PATIENT
  Age: 76 Year
  Sex: Male
  Weight: 90 kg

DRUGS (4)
  1. ENOXAPARIN SODIUM [Suspect]
     Indication: CATHETER RELATED COMPLICATION
     Dosage: 100 MG BID ORAL
     Route: 048
     Dates: start: 20040419, end: 20040424
  2. ENOXAPARIN SODIUM [Suspect]
     Indication: DEEP VEIN THROMBOSIS
     Dosage: 100 MG BID ORAL
     Route: 048
     Dates: start: 20040419, end: 20040424
  3. WARFARIN SODIUM [Suspect]
     Indication: CATHETER RELATED COMPLICATION
     Dosage: 5 MG QD ORAL
     Route: 048
     Dates: start: 20040419, end: 20040424
  4. WARFARIN SODIUM [Suspect]
     Indication: DEEP VEIN THROMBOSIS
     Dosage: 5 MG QD ORAL
     Route: 048
     Dates: start: 20040419, end: 20040424

REACTIONS (11)
  - ANAEMIA [None]
  - CATHETER RELATED COMPLICATION [None]
  - CEREBROVASCULAR ACCIDENT [None]
  - DEEP VEIN THROMBOSIS [None]
  - INTERNATIONAL NORMALISED RATIO INCREASED [None]
  - KLEBSIELLA INFECTION [None]
  - RENAL FAILURE ACUTE [None]
  - RETROPERITONEAL HAEMORRHAGE [None]
  - SMALL INTESTINAL OBSTRUCTION [None]
  - TENDERNESS [None]
  - URINARY TRACT INFECTION [None]
